FAERS Safety Report 14698216 (Version 2)
Quarter: 2018Q2

REPORT INFORMATION
  Report Type: Report from Study
  Country: None (occurrence: US)
  Receive Date: 20180330
  Receipt Date: 20180406
  Transmission Date: 20180711
  Serious: Yes (Other)
  Sender: FDA-Public Use
  Company Number: US-ABBVIE-18K-163-2301043-00

PATIENT
  Age: 35 Year
  Sex: Female
  Weight: 74.91 kg

DRUGS (2)
  1. HUMIRA [Suspect]
     Active Substance: ADALIMUMAB
     Indication: ANKYLOSING SPONDYLITIS
     Route: 058
     Dates: start: 20180125, end: 20180308
  2. SPIRONOLACTONE. [Concomitant]
     Active Substance: SPIRONOLACTONE
     Indication: FLUID RETENTION

REACTIONS (12)
  - Nasal congestion [Recovering/Resolving]
  - Nausea [Recovered/Resolved]
  - Confusional state [Unknown]
  - Headache [Recovering/Resolving]
  - Intracranial pressure increased [Recovering/Resolving]
  - Sinus headache [Unknown]
  - Paranasal sinus discomfort [Recovering/Resolving]
  - Ear discomfort [Recovering/Resolving]
  - Fatigue [Recovering/Resolving]
  - Feeling abnormal [Recovering/Resolving]
  - Dysarthria [Recovering/Resolving]
  - Stupor [Not Recovered/Not Resolved]

NARRATIVE: CASE EVENT DATE: 2018
